APPROVED DRUG PRODUCT: IOBENGUANE I-123
Active Ingredient: IOBENGUANE SULFATE I-123
Strength: 10mCi/5ML (2mCi/ML)
Dosage Form/Route: SOLUTION;INTRAVENOUS
Application: A213637 | Product #001
Applicant: BWXT MEDICAL LTD
Approved: Dec 9, 2024 | RLD: No | RS: No | Type: DISCN